FAERS Safety Report 8035512-5 (Version None)
Quarter: 2012Q1

REPORT INFORMATION
  Report Type: 
  Country: None (occurrence: None)
  Receive Date: 20120110
  Receipt Date: 20120110
  Transmission Date: 20120608
  Serious: No
  Sender: FDA-Public Use
  Company Number: None

PATIENT
  Age: 79 Year
  Sex: Male
  Weight: 95 kg

DRUGS (2)
  1. CEFOTAN [Suspect]
     Indication: POSTOPERATIVE CARE
     Dosage: 2 GM Q12? IV
     Route: 042
     Dates: start: 20111116, end: 20111117
  2. CEFOTAN [Suspect]
     Indication: PROPHYLAXIS
     Dosage: 2 GM Q12? IV
     Route: 042
     Dates: start: 20111116, end: 20111117

REACTIONS (4)
  - ERYTHEMA [None]
  - RASH MACULO-PAPULAR [None]
  - RESPIRATORY DISTRESS [None]
  - URTICARIA [None]
